FAERS Safety Report 7651426-4 (Version None)
Quarter: 2011Q3

REPORT INFORMATION
  Report Type: 
  Country: None (occurrence: None)
  Receive Date: 20110802
  Receipt Date: 20110721
  Transmission Date: 20111222
  Serious: Yes (Hospitalization, Other)
  Sender: FDA-Public Use
  Company Number: PHHY2011US38261

PATIENT
  Sex: Female

DRUGS (7)
  1. GABAPENTIN [Concomitant]
     Dosage: UNK UKN, UNK
  2. ZOLPIDEM [Concomitant]
     Dosage: UNK UKN, UNK
  3. CYCLOBENZAPRINE [Concomitant]
     Dosage: UNK UKN, UNK
  4. AMEPRASOLD [Concomitant]
     Dosage: UNK UKN, UNK
  5. GLEEVEC [Suspect]
     Dosage: 100 MG, TID
  6. TASIGNA [Suspect]
     Indication: CHRONIC MYELOID LEUKAEMIA
     Dosage: 300 MG, BID
     Route: 048
     Dates: start: 20100505, end: 20110516
  7. IBUPROFEN [Concomitant]
     Dosage: UNK UKN, UNK

REACTIONS (12)
  - CEREBROVASCULAR ACCIDENT [None]
  - CRYING [None]
  - BONE NEOPLASM MALIGNANT [None]
  - DYSGRAPHIA [None]
  - BONE PAIN [None]
  - MALAISE [None]
  - BLOOD ELECTROLYTES INCREASED [None]
  - DEHYDRATION [None]
  - ABDOMINAL PAIN UPPER [None]
  - NAUSEA [None]
  - DEPRESSION [None]
  - STOMATITIS [None]
